FAERS Safety Report 7640676-9 (Version None)
Quarter: 2011Q3

REPORT INFORMATION
  Report Type: 
  Country: None (occurrence: None)
  Receive Date: 20110728
  Receipt Date: 20110516
  Transmission Date: 20111222
  Serious: Yes (Hospitalization)
  Sender: FDA-Public Use
  Company Number: US-BAYER-2011-042979

PATIENT
  Age: 46 Year
  Sex: Female
  Weight: 68 kg

DRUGS (7)
  1. TPN [Suspect]
     Indication: MEDICAL DIET
     Dosage: 400 MG, CAPSULES
     Route: 048
     Dates: start: 20090101, end: 20110308
  2. DONG QUAI COMPLEX [Suspect]
     Indication: MEDICAL DIET
     Dosage: 530 MG, CAPSULES
     Route: 048
     Dates: start: 20090101, end: 20110308
  3. OMEGA 3-6-9 [Concomitant]
  4. BEYAZ [Suspect]
     Indication: HORMONE REPLACEMENT THERAPY
     Dosage: UNK
     Dates: start: 20110101, end: 20110308
  5. SOY ISOFLAVONES [Suspect]
     Indication: MEDICAL DIET
     Dosage: CAPSULES
     Route: 048
     Dates: start: 20090101, end: 20110308
  6. WOMEN'S MULTI [Concomitant]
  7. CHONDROITIN W/GLUCOSAMINE/ METHYLSULFONYLEMETH. [Concomitant]

REACTIONS (6)
  - PULMONARY EMBOLISM [None]
  - INTESTINAL OBSTRUCTION [None]
  - PAIN IN EXTREMITY [None]
  - WHEEZING [None]
  - DYSPNOEA [None]
  - PLEURAL EFFUSION [None]
